FAERS Safety Report 6065664-8 (Version None)
Quarter: 2009Q1

REPORT INFORMATION
  Report Type: 
  Country: None (occurrence: None)
  Receive Date: 20090204
  Receipt Date: 20090130
  Transmission Date: 20090719
  Serious: Yes (Other)
  Sender: FDA-Public Use
  Company Number: US-GILEAD-2009-0020091

PATIENT
  Sex: Female

DRUGS (14)
  1. LETAIRIS [Suspect]
  2. CARDIZEM [Concomitant]
  3. LOVENOX [Concomitant]
  4. HYZAAR [Concomitant]
  5. COUMADIN [Concomitant]
  6. LASIX [Concomitant]
  7. TRIAMTERENE AND HYDROCHLOROTHIAZIDE [Concomitant]
  8. XOPENEX [Concomitant]
  9. ALPRAZOLAM [Concomitant]
  10. ACIPHEX [Concomitant]
  11. VICODIN [Concomitant]
  12. LEVOTHYROXINE [Concomitant]
  13. CONJUGATED ESTROGENS [Concomitant]
  14. BENTYL [Concomitant]

REACTIONS (1)
  - CELLULITIS [None]
